FAERS Safety Report 23444165 (Version 1)
Quarter: 2024Q1

REPORT INFORMATION
  Report Type: Spontaneous
  Country: US (occurrence: None)
  Receive Date: 20240125
  Receipt Date: 20240125
  Transmission Date: 20240409
  Serious: Yes (Death)
  Sender: FDA-Public Use
  Company Number: None

PATIENT
  Age: 86 Year
  Sex: Female

DRUGS (2)
  1. TERIPARATIDE [Suspect]
     Active Substance: TERIPARATIDE
     Indication: Senile osteoporosis
     Dosage: OTHER STRENGTH : 250 UG/ML;?FREQUENCY : DAILY;?
     Route: 058
     Dates: start: 202312
  2. FORTEO [Concomitant]
     Active Substance: TERIPARATIDE

REACTIONS (1)
  - Death [None]

NARRATIVE: CASE EVENT DATE: 20240110
